FAERS Safety Report 7637180-0 (Version None)
Quarter: 2011Q3

REPORT INFORMATION
  Report Type: 
  Country: None (occurrence: None)
  Receive Date: 20110726
  Receipt Date: 20110712
  Transmission Date: 20111222
  Serious: Yes (Hospitalization)
  Sender: FDA-Public Use
  Company Number: PHHY2011KR63117

PATIENT

DRUGS (9)
  1. TEGRETOL [Suspect]
     Dosage: UNK UKN, UNK
  2. MORPHINE SULFATE [Concomitant]
     Dosage: UNK UKN, UNK
  3. OXYCODONE HCL [Concomitant]
     Dosage: UNK UKN, UNK
  4. ACETYLCYSTEINE [Concomitant]
     Dosage: UNK UKN, UNK
  5. AMITRIPTYLINE HCL [Concomitant]
     Dosage: UNK UKN, UNK
  6. MAGNESIUM OXIDE [Concomitant]
     Dosage: UNK UKN, UNK
  7. TRAMADOL HCL [Concomitant]
     Dosage: UNK UKN, UNK
  8. PREDNISOLONE [Concomitant]
     Dosage: UNK UKN, UNK
  9. GABAPENTIN [Concomitant]
     Dosage: UNK UKN, UNK

REACTIONS (1)
  - DYSPHAGIA [None]
